FAERS Safety Report 7510057-7 (Version None)
Quarter: 2011Q2

REPORT INFORMATION
  Report Type: 
  Country: None (occurrence: None)
  Receive Date: 20110527
  Receipt Date: 20110516
  Transmission Date: 20111010
  Serious: Yes (Other)
  Sender: FDA-Public Use
  Company Number: US-JNJFOC-20110311462

PATIENT
  Sex: Female
  Weight: 91.63 kg

DRUGS (18)
  1. METFORMIN HCL [Concomitant]
     Indication: TYPE 2 DIABETES MELLITUS
     Route: 048
     Dates: start: 20100101
  2. BENADRYL [Concomitant]
     Indication: PREMEDICATION
     Dates: start: 20110201
  3. ALLEGRA [Concomitant]
     Indication: MULTIPLE ALLERGIES
     Route: 048
  4. REMICADE [Suspect]
     Dosage: INFUSION #2
     Route: 042
     Dates: start: 20110201
  5. METHOTREXATE [Concomitant]
     Indication: RHEUMATOID ARTHRITIS
     Dosage: DOSE 10 MG EVERY 12 HOURS FOR 3 DOSES ONCE A WEEK
     Route: 048
     Dates: start: 20110101
  6. PRILOSEC [Concomitant]
     Indication: GASTROOESOPHAGEAL REFLUX DISEASE
     Route: 048
  7. PREDNISONE [Concomitant]
     Indication: PREMEDICATION
  8. REMICADE [Suspect]
     Dosage: INFUSION #2
     Route: 042
     Dates: start: 20110201
  9. LEXAPRO [Concomitant]
     Indication: DEPRESSION
     Route: 048
  10. TYLENOL W/ CODEINE NO. 3 [Concomitant]
     Indication: ARTHRALGIA
     Route: 048
  11. REMICADE [Suspect]
     Indication: PSORIATIC ARTHROPATHY
     Dosage: INFUSION #1
     Route: 042
     Dates: start: 20110101
  12. REMICADE [Suspect]
     Indication: RHEUMATOID ARTHRITIS
     Dosage: INFUSION #3
     Route: 042
     Dates: start: 20110324
  13. REMICADE [Suspect]
     Dosage: INFUSION #1
     Route: 042
     Dates: start: 20110101
  14. SYNTHROID [Concomitant]
     Indication: HYPOTHYROIDISM
     Route: 048
  15. LISINOPRIL [Concomitant]
     Indication: HYPERTENSION
     Route: 048
  16. REMICADE [Suspect]
     Dosage: INFUSION #3
     Route: 042
     Dates: start: 20110324
  17. FOLIC ACID [Concomitant]
     Indication: FOLATE DEFICIENCY
     Route: 048
  18. SOLU-MEDROL [Concomitant]
     Indication: PREMEDICATION
     Dates: start: 20110201

REACTIONS (10)
  - LETHARGY [None]
  - TREMOR [None]
  - VITAMIN D DEFICIENCY [None]
  - PARAESTHESIA [None]
  - NAUSEA [None]
  - DIZZINESS [None]
  - HEADACHE [None]
  - BLOOD GLUCOSE INCREASED [None]
  - INFUSION RELATED REACTION [None]
  - MALAISE [None]
